FAERS Safety Report 8102645-4 (Version None)
Quarter: 2011Q4

REPORT INFORMATION
  Report Type: 
  Country: None (occurrence: None)
  Receive Date: 20111222
  Receipt Date: 20110907
  Transmission Date: 20120403
  Serious: Yes (Hospitalization)
  Sender: FDA-Public Use
  Company Number: UTC-010050

PATIENT
  Age: 58 Year
  Sex: Female
  Weight: 80 kg

DRUGS (3)
  1. TYVASO [Suspect]
     Indication: COR PULMONALE CHRONIC
     Dosage: 216 MCG (54 MCG, 4 IN 1 D), INHALATION
     Route: 055
     Dates: start: 20110627
  2. ADCIRCA [Concomitant]
  3. LETAIRIS [Concomitant]

REACTIONS (5)
  - DRY MOUTH [None]
  - HEART RATE IRREGULAR [None]
  - HAEMATOMA [None]
  - DIARRHOEA [None]
  - PULMONARY OEDEMA [None]
